FAERS Safety Report 5420436-X (Version None)
Quarter: 2007Q3

REPORT INFORMATION
  Report Type: 
  Country: None (occurrence: None)
  Receive Date: 20070816
  Receipt Date: 20070801
  Transmission Date: 20080115
  Serious: Yes (Other)
  Sender: FDA-Public Use
  Company Number: 8025795

PATIENT
  Sex: Female

DRUGS (2)
  1. KEPPRA [Suspect]
     Indication: CONVULSION
     Dosage: 250 MG 4/D
     Dates: start: 20070501
  2. TOPAMAX [Suspect]
     Dosage: 50 MG 2/D
     Dates: start: 20060901

REACTIONS (12)
  - AURA [None]
  - CONVULSION [None]
  - DEPRESSION [None]
  - DIVORCED [None]
  - ECTOPIC PREGNANCY [None]
  - FALL [None]
  - FATIGUE [None]
  - HYPOAESTHESIA [None]
  - MENSTRUAL DISORDER [None]
  - PHOTOPSIA [None]
  - SOMNOLENCE [None]
  - STRESS [None]
